FAERS Safety Report 11850318 (Version 1)
Quarter: 2015Q4

REPORT INFORMATION
  Report Type: Spontaneous
  Country: US (occurrence: US)
  Receive Date: 20151218
  Receipt Date: 20151218
  Transmission Date: 20160305
  Serious: No
  Sender: FDA-Public Use
  Company Number: US-JNJFOC-20151118997

PATIENT
  Age: 71 Year
  Sex: Female
  Weight: 59.88 kg

DRUGS (1)
  1. TYLENOL EXTRA STRENGTH [Suspect]
     Active Substance: ACETAMINOPHEN
     Indication: MUSCULOSKELETAL PAIN
     Dosage: 2 TABLET, EVERY 6 HOURS AS NEEDED
     Route: 048

REACTIONS (2)
  - Palpitations [Recovered/Resolved]
  - Fatigue [Recovered/Resolved]
